FAERS Safety Report 6112270-2 (Version None)
Quarter: 2009Q1

REPORT INFORMATION
  Report Type: 
  Country: None (occurrence: None)
  Receive Date: 20090312
  Receipt Date: 20090309
  Transmission Date: 20090719
  Serious: Yes (Hospitalization)
  Sender: FDA-Public Use
  Company Number: IT-SP-2009-00926

PATIENT
  Age: 84 Year
  Sex: Male

DRUGS (2)
  1. IMMUCYST [Suspect]
     Indication: BLADDER CANCER
     Route: 043
     Dates: start: 20081104, end: 20090120
  2. IMMUCYST [Suspect]
     Route: 043
     Dates: start: 20081104, end: 20090120

REACTIONS (3)
  - BOVINE TUBERCULOSIS [None]
  - INCORRECT DOSE ADMINISTERED [None]
  - SEPSIS [None]
